FAERS Safety Report 7544315-7 (Version None)
Quarter: 2011Q2

REPORT INFORMATION
  Report Type: 
  Country: None (occurrence: None)
  Receive Date: 20110613
  Receipt Date: 20071128
  Transmission Date: 20111010
  Serious: Yes (Death, Other)
  Sender: FDA-Public Use
  Company Number: PHHO2007VE09889

PATIENT
  Sex: Male

DRUGS (1)
  1. DIOVAN HCT [Suspect]
     Dosage: 172.5 MG, UNK
     Route: 048
     Dates: start: 20020101

REACTIONS (4)
  - MYOCARDIAL INFARCTION [None]
  - DIARRHOEA [None]
  - VOMITING [None]
  - HERNIAL EVENTRATION [None]
